FAERS Safety Report 4646207-X (Version None)
Quarter: 2005Q2

REPORT INFORMATION
  Report Type: 
  Country: None (occurrence: None)
  Receive Date: 20050422
  Receipt Date: 20050422
  Transmission Date: 20051028
  Serious: No
  Sender: FDA-Public Use
  Company Number: None

PATIENT
  Sex: Female
  Weight: 55.9 kg

DRUGS (3)
  1. DOXORUBICIN  30 MG [Suspect]
     Indication: NEOPLASM
     Dosage: 30 MG
     Dates: start: 20050121
  2. MITOMYCIN [Suspect]
     Dosage: 30 MG
  3. CISPLATIN [Suspect]
     Dosage: 100 MG FOLLOWED BY EMBOLIZATION

REACTIONS (4)
  - ABDOMINAL PAIN LOWER [None]
  - CONFUSIONAL STATE [None]
  - MENTAL STATUS CHANGES [None]
  - SMALL INTESTINAL OBSTRUCTION [None]
